FAERS Safety Report 4749057-9 (Version None)
Quarter: 2005Q3

REPORT INFORMATION
  Report Type: 
  Country: None (occurrence: None)
  Receive Date: 20050817
  Receipt Date: 20050728
  Transmission Date: 20060218
  Serious: Yes (Hospitalization, Other)
  Sender: FDA-Public Use
  Company Number: A-CH2005-10076

PATIENT
  Age: 71 Year
  Sex: Female
  Weight: 51 kg

DRUGS (3)
  1. TRACLEER [Suspect]
     Indication: SKIN ULCER
     Dosage: 125 MG, BID, ORAL
     Route: 048
     Dates: end: 20040817
  2. LOSARTAN POTASSIUM [Concomitant]
  3. PREDNISONE [Concomitant]

REACTIONS (2)
  - HEPATIC CYST [None]
  - HEPATITIS TOXIC [None]
